FAERS Safety Report 14026675 (Version 1)
Quarter: 2017Q3

REPORT INFORMATION
  Report Type: Not Available
  Country: DE (occurrence: DE)
  Receive Date: 20170929
  Receipt Date: 20170929
  Transmission Date: 20171128
  Serious: Yes (Death)
  Sender: FDA-Public Use
  Company Number: DE-ANIPHARMA-2017-DE-000034

PATIENT
  Age: 47 Year
  Sex: Male
  Weight: 81 kg

DRUGS (11)
  1. HALOPERIDOL. [Suspect]
     Active Substance: HALOPERIDOL
     Dosage: 10MG
  2. AMITRIPTYLINE (NON-SPECIFIC) [Suspect]
     Active Substance: AMITRIPTYLINE
  3. PROMETHAZINE HCL (NON-SPECIFIC) [Suspect]
     Active Substance: PROMETHAZINE HYDROCHLORIDE
  4. PERAZINE [Suspect]
     Active Substance: PERAZINE
  5. CLOMETHIAZOLE [Suspect]
     Active Substance: CLOMETHIAZOLE
  6. BIPERIDEN [Suspect]
     Active Substance: BIPERIDEN
     Dosage: 8MG
  7. CHLORPROTHIXENE [Suspect]
     Active Substance: CHLORPROTHIXENE
     Dosage: 450MG
  8. PHENOBARBITAL. [Suspect]
     Active Substance: PHENOBARBITAL
  9. RISPERIDONE (NON-SPECIFIC) [Suspect]
     Active Substance: RISPERIDONE
  10. OLANZAPINE. [Suspect]
     Active Substance: OLANZAPINE
     Dosage: 15MG/DAY
  11. LEVOMEPROMAZINE [Suspect]
     Active Substance: LEVOMEPROMAZINE
     Dosage: 400MG/DAY

REACTIONS (4)
  - Ileus paralytic [Fatal]
  - Megacolon [Fatal]
  - Death [Fatal]
  - Circulatory collapse [Fatal]
